FAERS Safety Report 9698587 (Version 2)
Quarter: 2014Q1

REPORT INFORMATION
  Report Type: Spontaneous
  Country: GB (occurrence: GB)
  Receive Date: 20131120
  Receipt Date: 20140313
  Transmission Date: 20141002
  Serious: Yes (Other)
  Sender: FDA-Public Use
  Company Number: GB-GLAXOSMITHKLINE-B0944167A

PATIENT
  Age: 47 Year
  Sex: Female
  Weight: 70 kg

DRUGS (10)
  1. ELTROMBOPAG [Suspect]
     Indication: IMMUNE THROMBOCYTOPENIC PURPURA
     Route: 048
     Dates: start: 20131018, end: 20131031
  2. PREDNISOLONE ACETATE [Concomitant]
  3. ROMIPLOSTIM [Concomitant]
     Indication: IMMUNE THROMBOCYTOPENIC PURPURA
     Dates: end: 20131015
  4. FERROUS FUMARATE [Concomitant]
  5. THYROXINE [Concomitant]
  6. OMEPRAZOLE [Concomitant]
  7. TRANEXAMIC ACID [Concomitant]
     Indication: MENORRHAGIA
  8. CALCIUM + VITAMIN D3 [Concomitant]
  9. NYSTATIN [Concomitant]
  10. ERYTHROMYCIN [Concomitant]

REACTIONS (7)
  - Rash [Recovered/Resolved]
  - Lip swelling [Recovering/Resolving]
  - Mouth ulceration [Recovering/Resolving]
  - Purpura [Recovered/Resolved]
  - Rash erythematous [Recovered/Resolved]
  - Platelet count decreased [Recovering/Resolving]
  - Withdrawal syndrome [Unknown]
